FAERS Safety Report 8506441-5 (Version None)
Quarter: 2012Q3

REPORT INFORMATION
  Report Type: 
  Country: None (occurrence: None)
  Receive Date: 20120712
  Receipt Date: 20120606
  Transmission Date: 20120928
  Serious: Yes (Hospitalization)
  Sender: FDA-Public Use
  Company Number: CO-ELI_LILLY_AND_COMPANY-CO201207003225

PATIENT
  Age: 72 Year
  Sex: Female

DRUGS (12)
  1. CALCIUM [Concomitant]
  2. FORTEO [Suspect]
     Dosage: 20 UG, QD
     Route: 058
     Dates: start: 20120426
  3. ACETAMINOPHEN W/ CODEINE [Concomitant]
  4. VITAMIN B-12 [Concomitant]
  5. MYLANTA [Concomitant]
  6. FORTEO [Suspect]
     Indication: OSTEOPOROSIS
     Dosage: 20 UG, QD
     Route: 058
     Dates: start: 20120328, end: 20120411
  7. CALCITRIOL [Concomitant]
  8. BIOCALCIUM                         /00751501/ [Concomitant]
  9. LOSARTAN POTASSIUM [Concomitant]
  10. PREDNISOLONE [Concomitant]
  11. FOLIC ACID [Concomitant]
  12. CALCIUM W/VITAMIN D NOS [Concomitant]

REACTIONS (2)
  - CELLULITIS [None]
  - VEIN DISORDER [None]
